FAERS Safety Report 6616665-X (Version None)
Quarter: 2010Q1

REPORT INFORMATION
  Report Type: 
  Country: None (occurrence: None)
  Receive Date: 20100223
  Receipt Date: 20091105
  Transmission Date: 20100710
  Serious: No
  Sender: FDA-Public Use
  Company Number: 8054276

PATIENT
  Sex: Female
  Weight: 72.7 kg

DRUGS (5)
  1. CIMZIA [Suspect]
     Indication: CROHN'S DISEASE
     Dosage: 400 MG 1X/MONTH SUBCUTANEOUS
     Route: 058
     Dates: start: 20091014
  2. FENTANYL [Concomitant]
  3. VICODIN ES [Concomitant]
  4. RITALIN [Concomitant]
  5. IMODIUM /00384302/ [Concomitant]

REACTIONS (1)
  - EAR INFECTION STAPHYLOCOCCAL [None]
